FAERS Safety Report 17128932 (Version 1)
Quarter: 2019Q4

REPORT INFORMATION
  Report Type: Spontaneous
  Country: CZ (occurrence: CZ)
  Receive Date: 20191209
  Receipt Date: 20191209
  Transmission Date: 20200122
  Serious: Yes (Other)
  Sender: FDA-Public Use
  Company Number: CZ-MYLANLABS-2019M1119498

PATIENT
  Age: 57 Year
  Sex: Male

DRUGS (7)
  1. CALCIUM FOLINATE [Concomitant]
     Active Substance: LEUCOVORIN CALCIUM
     Indication: COLORECTAL ADENOCARCINOMA
  2. FLUOROURACIL. [Concomitant]
     Active Substance: FLUOROURACIL
     Indication: COLORECTAL ADENOCARCINOMA
  3. DOCETAXEL. [Concomitant]
     Active Substance: DOCETAXEL
     Indication: COLORECTAL ADENOCARCINOMA
  4. CARBOPLATIN. [Concomitant]
     Active Substance: CARBOPLATIN
     Indication: COLORECTAL ADENOCARCINOMA
  5. OXALIPLATIN. [Suspect]
     Active Substance: OXALIPLATIN
     Indication: COLORECTAL ADENOCARCINOMA
     Dosage: UNK
     Route: 042
  6. IRINOTECAN [Concomitant]
     Active Substance: IRINOTECAN
     Indication: COLORECTAL ADENOCARCINOMA
     Dosage: UNK
  7. PANITUMUMAB [Suspect]
     Active Substance: PANITUMUMAB
     Indication: COLORECTAL ADENOCARCINOMA
     Dosage: UNK

REACTIONS (4)
  - Dermatitis acneiform [Unknown]
  - Haematotoxicity [Unknown]
  - Neurotoxicity [Unknown]
  - Skin toxicity [Recovered/Resolved]
